FAERS Safety Report 10928359 (Version 1)
Quarter: 2015Q1

REPORT INFORMATION
  Report Type: Spontaneous
  Country: US (occurrence: None)
  Receive Date: 20150317
  Receipt Date: 20150317
  Transmission Date: 20150721
  Serious: Yes (Hospitalization)
  Sender: FDA-Public Use
  Company Number: None

PATIENT
  Age: 76 Year
  Sex: Male

DRUGS (6)
  1. DRLTIA [Concomitant]
  2. SOVALDI [Concomitant]
     Active Substance: SOFOSBUVIR
  3. CALCIUM [Concomitant]
     Active Substance: CALCIUM
  4. ECOTRIN [Concomitant]
     Active Substance: ASPIRIN
  5. RIBASPHERE [Suspect]
     Active Substance: RIBAVIRIN
     Indication: HEPATITIS C
     Route: 048
     Dates: start: 20150211, end: 20150316
  6. CARDIZEM [Concomitant]
     Active Substance: DILTIAZEM HYDROCHLORIDE

REACTIONS (2)
  - Chest pain [None]
  - Myocardial infarction [None]

NARRATIVE: CASE EVENT DATE: 20150316
